FAERS Safety Report 15136605 (Version 4)
Quarter: 2018Q3

REPORT INFORMATION
  Report Type: Spontaneous
  Country: US (occurrence: US)
  Receive Date: 20180712
  Receipt Date: 20180719
  Transmission Date: 20181010
  Serious: Yes (Hospitalization)
  Sender: FDA-Public Use
  Company Number: US-ACTELION-A-NJ2018-165747

PATIENT
  Age: 46 Year
  Sex: Male

DRUGS (8)
  1. SILDENAFIL. [Concomitant]
     Active Substance: SILDENAFIL
  2. PROTONIX [Concomitant]
     Active Substance: PANTOPRAZOLE SODIUM
  3. TORSEMIDE. [Concomitant]
     Active Substance: TORSEMIDE
  4. OPSUMIT [Suspect]
     Active Substance: MACITENTAN
     Indication: PULMONARY ARTERIAL HYPERTENSION
     Dosage: 10 MG, QD
     Route: 048
     Dates: start: 20180608
  5. ALDACTONE [Concomitant]
     Active Substance: SPIRONOLACTONE
  6. VELETRI [Suspect]
     Active Substance: EPOPROSTENOL
     Dosage: 25 NG/KG, PER MIN
     Route: 042
     Dates: start: 20170817
  7. VELETRI [Suspect]
     Active Substance: EPOPROSTENOL
     Indication: PULMONARY ARTERIAL HYPERTENSION
     Dosage: 31 NG/KG, PER MIN
     Route: 042
     Dates: start: 20170817
  8. NEURONTIN [Concomitant]
     Active Substance: GABAPENTIN

REACTIONS (11)
  - Device related infection [Recovered/Resolved]
  - Catheter site erythema [Recovered/Resolved]
  - Nausea [Unknown]
  - Dizziness exertional [Unknown]
  - Catheter site swelling [Recovered/Resolved]
  - Catheter site discharge [Recovered/Resolved]
  - Catheter management [Recovered/Resolved]
  - Pain in jaw [Unknown]
  - Headache [Unknown]
  - Catheter site infection [Recovered/Resolved]
  - Pseudomonas test positive [Recovered/Resolved]

NARRATIVE: CASE EVENT DATE: 20180329
